FAERS Safety Report 7983208 (Version 2)
Quarter: 2013Q3

REPORT INFORMATION
  Report Type: Report from Study
  Country: LT (occurrence: LT)
  Receive Date: 20110609
  Receipt Date: 20130827
  Transmission Date: 20140515
  Serious: Yes (Hospitalization, Other)
  Sender: FDA-Public Use
  Company Number: LT-AMGEN-LTUCT2011005094

PATIENT
  Age: 68 Year
  Sex: Male

DRUGS (4)
  1. DENOSUMAB [Suspect]
     Indication: METASTASES TO BONE
     Dosage: 1.7 ML, Q4WK
     Route: 058
     Dates: start: 20100323, end: 20101222
  2. CALCIGRAN FORTE [Concomitant]
     Dosage: UNK UNK, QD
     Route: 048
     Dates: start: 20061107
  3. HJERTEMAGNYL [Concomitant]
     Dosage: 150 MG, QD
     Route: 048
     Dates: start: 20101110
  4. CARVEDILOL [Concomitant]
     Dosage: UNK
     Dates: start: 200609

REACTIONS (1)
  - Osteomyelitis chronic [Recovered/Resolved]
